FAERS Safety Report 5409049-3 (Version None)
Quarter: 2007Q3

REPORT INFORMATION
  Report Type: 
  Country: None (occurrence: None)
  Receive Date: 20070808
  Receipt Date: 20070731
  Transmission Date: 20080115
  Serious: Yes (Life-Threatening, Hospitalization, Other)
  Sender: FDA-Public Use
  Company Number: US-ALLERGAN-0707890US

PATIENT
  Sex: Female

DRUGS (1)
  1. BOTOX [Suspect]
     Indication: TORTICOLLIS
     Dosage: 200 UNITS, QPM
     Route: 030
     Dates: start: 20070605, end: 20070605

REACTIONS (3)
  - DYSPHAGIA [None]
  - HEPATIC FAILURE [None]
  - RASH [None]
